FAERS Safety Report 9992427 (Version 2)
Quarter: 2014Q2

REPORT INFORMATION
  Report Type: Spontaneous
  Country: FR (occurrence: FR)
  Receive Date: 20140310
  Receipt Date: 20140618
  Transmission Date: 20141212
  Serious: Yes (Hospitalization)
  Sender: FDA-Public Use
  Company Number: FR-GLAXOSMITHKLINE-B0957915A

PATIENT
  Age: 50 Year
  Sex: Male

DRUGS (12)
  1. REQUIP [Suspect]
     Indication: PARKINSON^S DISEASE
     Route: 065
     Dates: start: 200310, end: 200706
  2. MODOPAR [Suspect]
     Indication: PARKINSON^S DISEASE
     Route: 065
     Dates: start: 200409
  3. STALEVO [Concomitant]
     Indication: PARKINSON^S DISEASE
     Route: 065
  4. RIVOTRIL [Concomitant]
     Indication: MYOCLONUS
     Route: 065
     Dates: start: 2004
  5. MOTILIUM [Concomitant]
     Route: 065
  6. VITAMIN B6 [Concomitant]
  7. HEXAQUINE [Concomitant]
  8. LEVITRA [Concomitant]
     Route: 065
     Dates: start: 2003
  9. RIFATER [Concomitant]
     Dosage: 4TAB IN THE MORNING
     Route: 065
  10. PIRILENE [Concomitant]
     Dosage: .5UNIT IN THE MORNING
     Route: 065
  11. MOPRAL [Concomitant]
     Dosage: 2UNIT PER DAY
     Route: 065
  12. PERGOLIDE [Concomitant]
     Indication: PARKINSON^S DISEASE
     Dosage: 1MG THREE TIMES PER DAY
     Route: 048
     Dates: start: 200406, end: 2004

REACTIONS (10)
  - Dopamine dysregulation syndrome [Recovered/Resolved]
  - Pathological gambling [Recovered/Resolved]
  - Impulse-control disorder [Recovered/Resolved]
  - Hallucination [Recovered/Resolved]
  - Insomnia [Unknown]
  - Compulsive sexual behaviour [Recovered/Resolved]
  - Impulsive behaviour [Recovered/Resolved]
  - Abnormal behaviour [Recovered/Resolved]
  - Somnolence [Unknown]
  - Incorrect drug administration rate [Unknown]
